FAERS Safety Report 8282953-7 (Version None)
Quarter: 2012Q2

REPORT INFORMATION
  Report Type: 
  Country: None (occurrence: None)
  Receive Date: 20120413
  Receipt Date: 20120330
  Transmission Date: 20120825
  Serious: Yes (Hospitalization, Other)
  Sender: FDA-Public Use
  Company Number: US-WATSON-2012-05752

PATIENT
  Age: 35 Year
  Sex: Female

DRUGS (1)
  1. LEVONORGESTREL + ETHINYL ESTRADIOL [Suspect]
     Indication: CONTRACEPTION
     Dosage: 1 TAB DAILY
     Route: 048
     Dates: start: 20110501, end: 20110616

REACTIONS (4)
  - OEDEMA PERIPHERAL [None]
  - NAUSEA [None]
  - PULMONARY EMBOLISM [None]
  - LIMB DISCOMFORT [None]
